FAERS Safety Report 8021005-8 (Version None)
Quarter: 2011Q4

REPORT INFORMATION
  Report Type: 
  Country: None (occurrence: None)
  Receive Date: 20111229
  Receipt Date: 20111213
  Transmission Date: 20120403
  Serious: Yes (Other)
  Sender: FDA-Public Use
  Company Number: 2011AP003033

PATIENT
  Age: 83 Year
  Sex: Female

DRUGS (4)
  1. AMLODIPINE [Suspect]
     Dosage: 5 MG
     Route: 048
  2. AMLODIPINE [Concomitant]
  3. BENDROFLUMETHIAZIDE (BENDROFLUMETHIAZIDE) [Concomitant]
  4. BECONASE [Concomitant]

REACTIONS (6)
  - PHOTOPHOBIA [None]
  - SWELLING FACE [None]
  - LOCAL SWELLING [None]
  - SINUS DISORDER [None]
  - DIZZINESS [None]
  - HEADACHE [None]
